FAERS Safety Report 8264210-8 (Version None)
Quarter: 2012Q2

REPORT INFORMATION
  Report Type: 
  Country: None (occurrence: None)
  Receive Date: 20120406
  Receipt Date: 20120330
  Transmission Date: 20120825
  Serious: Yes (Hospitalization)
  Sender: FDA-Public Use
  Company Number: US-JNJFOC-20120400301

PATIENT
  Sex: Female
  Weight: 108.86 kg

DRUGS (1)
  1. DURAGESIC-100 [Suspect]
     Indication: PAIN
     Route: 062

REACTIONS (4)
  - PRODUCT QUALITY ISSUE [None]
  - APPLICATION SITE REACTION [None]
  - LOWER LIMB FRACTURE [None]
  - FALL [None]
